FAERS Safety Report 8158945-5 (Version None)
Quarter: 2012Q1

REPORT INFORMATION
  Report Type: 
  Country: None (occurrence: None)
  Receive Date: 20120223
  Receipt Date: 20120220
  Transmission Date: 20120608
  Serious: Yes (Death, Hospitalization)
  Sender: FDA-Public Use
  Company Number: US-SANOFI-AVENTIS-2011SA077046

PATIENT
  Age: 56 Year
  Sex: Female

DRUGS (7)
  1. DOCETAXEL [Suspect]
     Indication: BREAST CANCER
     Route: 042
     Dates: start: 20020410
  2. DOCETAXEL [Suspect]
     Route: 042
  3. TRASTUZUMAB [Suspect]
     Dosage: FOR 8 CYCLES (1 CYCLE OF  21 DAYS).
     Route: 042
     Dates: start: 20020410
  4. DOXORUBICIN HCL [Suspect]
     Indication: BREAST CANCER
     Dosage: 30 MG AT 10-500 ML PER HOUR EVERY 21 DAYS FOR 8 CYCLES AFTER COMPLETION OF TRANSTUZUMAB INFUSION.
     Route: 042
     Dates: start: 20020410
  5. TRASTUZUMAB [Suspect]
     Indication: BREAST CANCER
     Route: 042
     Dates: start: 20020410, end: 20020410
  6. DOCETAXEL [Suspect]
     Dosage: 30 MG/M2 OVER 1 HOUR EVERY WEEK FOR 3 WEEKS EVERY 21 DAYS.
     Route: 042
  7. PYRIDOXINE HCL [Suspect]
     Indication: BREAST CANCER
     Route: 048
     Dates: start: 20020410

REACTIONS (9)
  - ANXIETY [None]
  - OSTEONECROSIS [None]
  - HYPERGLYCAEMIA [None]
  - WOUND INFECTION [None]
  - EMBOLISM [None]
  - ALANINE AMINOTRANSFERASE INCREASED [None]
  - ASPARTATE AMINOTRANSFERASE INCREASED [None]
  - HYPERKALAEMIA [None]
  - HYPOALBUMINAEMIA [None]
